FAERS Safety Report 5565529-1 (Version None)
Quarter: 2007Q4

REPORT INFORMATION
  Report Type: 
  Country: None (occurrence: None)
  Receive Date: 20071218
  Receipt Date: 20071208
  Transmission Date: 20080405
  Serious: Yes (Hospitalization, Other)
  Sender: FDA-Public Use
  Company Number: BR-ABBOTT-07P-020-0418078-00

PATIENT
  Sex: Female
  Weight: 67 kg

DRUGS (10)
  1. HUMIRA [Suspect]
     Indication: RHEUMATOID ARTHRITIS
     Route: 058
     Dates: start: 20070701, end: 20070906
  2. METHOTREXATE [Concomitant]
     Indication: RHEUMATOID ARTHRITIS
     Dates: end: 20070906
  3. METHOTREXATE [Concomitant]
     Dates: start: 20070920
  4. ETORICOXIB [Concomitant]
     Indication: RHEUMATOID ARTHRITIS
     Dates: end: 20070906
  5. ETORICOXIB [Concomitant]
     Dates: start: 20070920
  6. PREDNISONE [Concomitant]
     Indication: RHEUMATOID ARTHRITIS
  7. FOLIC ACID [Concomitant]
     Indication: RHEUMATOID ARTHRITIS
  8. CYCLOBENZAPRINE HCL [Concomitant]
     Indication: DRUG USE FOR UNKNOWN INDICATION
  9. AMITRIPTLINE HCL [Concomitant]
     Indication: AGITATION
  10. CAPTOPRIL [Concomitant]
     Indication: HYPERTENSION

REACTIONS (10)
  - ARTHRALGIA [None]
  - CEREBROVASCULAR DISORDER [None]
  - CONFUSIONAL STATE [None]
  - DRUG INEFFECTIVE [None]
  - FALL [None]
  - FOOT FRACTURE [None]
  - HEADACHE [None]
  - HYPERSENSITIVITY [None]
  - PRURITUS GENERALISED [None]
  - RASH MACULAR [None]
